FAERS Safety Report 7573228-X (Version None)
Quarter: 2011Q2

REPORT INFORMATION
  Report Type: 
  Country: None (occurrence: None)
  Receive Date: 20110627
  Receipt Date: 20110621
  Transmission Date: 20111010
  Serious: Yes (Other)
  Sender: FDA-Public Use
  Company Number: NL-PFIZER INC-2011137710

PATIENT
  Age: 31 Year
  Sex: Male
  Weight: 100 kg

DRUGS (2)
  1. ARTHROTEC [Suspect]
     Indication: BURSITIS
     Dosage: 50 MG, 4X/DAY
     Dates: start: 20060601, end: 20060608
  2. CODEINE PHOSPHATE AND ACETAMINOPHEN [Concomitant]
     Dosage: 500 MG, UNK

REACTIONS (3)
  - HALLUCINATION [None]
  - HYPERHIDROSIS [None]
  - MEMORY IMPAIRMENT [None]
